FAERS Safety Report 9370076 (Version 1)
Quarter: 2013Q2

REPORT INFORMATION
  Report Type: Spontaneous
  Country: US (occurrence: None)
  Receive Date: 20130621
  Receipt Date: 20130621
  Transmission Date: 20140414
  Serious: Yes (Other)
  Sender: FDA-Public Use
  Company Number: 1756868

PATIENT
  Sex: Female

DRUGS (1)
  1. BUPIVACAINE HCL [Suspect]
     Indication: SPINAL ANAESTHESIA

REACTIONS (4)
  - Wrong technique in drug usage process [None]
  - Anaesthetic complication [None]
  - Procedural complication [None]
  - Exposure during pregnancy [None]
